FAERS Safety Report 20818909 (Version 1)
Quarter: 2022Q2

REPORT INFORMATION
  Report Type: Spontaneous
  Country: US (occurrence: US)
  Receive Date: 20220512
  Receipt Date: 20220512
  Transmission Date: 20220721
  Serious: No
  Sender: FDA-Public Use
  Company Number: US-ABBVIE-21K-163-3959416-00

PATIENT
  Sex: Male

DRUGS (16)
  1. GENGRAF [Suspect]
     Active Substance: CYCLOSPORINE
     Indication: Retroperitoneal fibrosis
     Dosage: 0.5ML IN THE MORNING AND 0.5ML AT NIGHT?ONE TO TWO YEARS AGO
     Route: 048
     Dates: start: 2019, end: 2021
  2. GENGRAF [Suspect]
     Active Substance: CYCLOSPORINE
     Route: 048
     Dates: start: 2021
  3. PFIZER-BIONTECH COVID-19 VACCINE [Concomitant]
     Active Substance: TOZINAMERAN
     Indication: COVID-19 immunisation
     Dosage: MANUFACTURER: PFIZER
     Route: 030
     Dates: start: 20210331, end: 20210331
  4. PFIZER-BIONTECH COVID-19 VACCINE [Concomitant]
     Active Substance: TOZINAMERAN
     Dosage: MANUFACTURER: PFIZER
     Route: 030
     Dates: start: 20210421, end: 20210421
  5. PREDNISONE [Concomitant]
     Active Substance: PREDNISONE
     Indication: Immunosuppression
  6. ACYCLOVIR [Concomitant]
     Active Substance: ACYCLOVIR
     Indication: Prophylaxis
  7. LOSARTAN [Concomitant]
     Active Substance: LOSARTAN
     Indication: Hypertension
  8. FLUTICASONE [Concomitant]
     Active Substance: FLUTICASONE
     Indication: Hypersensitivity
  9. LORATADINE [Concomitant]
     Active Substance: LORATADINE
     Indication: Hypersensitivity
  10. OMEPRAZOLE [Concomitant]
     Active Substance: OMEPRAZOLE
     Indication: Gastrooesophageal reflux disease
  11. VITAMIN B12 [Concomitant]
     Active Substance: CYANOCOBALAMIN
     Indication: Vitamin B12 deficiency
  12. VITAMIN D3 [Concomitant]
     Active Substance: CHOLECALCIFEROL
     Indication: Vitamin D deficiency
  13. NORPACE [Concomitant]
     Active Substance: DISOPYRAMIDE PHOSPHATE
     Indication: Gastric disorder
  14. NORPACE [Concomitant]
     Active Substance: DISOPYRAMIDE PHOSPHATE
     Indication: Heart rate irregular
  15. DISOPYRAMIDE [Concomitant]
     Active Substance: DISOPYRAMIDE
     Indication: Product used for unknown indication
  16. CARDIZEM [Concomitant]
     Active Substance: DILTIAZEM HYDROCHLORIDE
     Indication: Heart rate irregular

REACTIONS (6)
  - Immunosuppressant drug level decreased [Unknown]
  - Back pain [Recovering/Resolving]
  - Pallor [Recovering/Resolving]
  - Incorrect dose administered [Unknown]
  - Device issue [Unknown]
  - Off label use [Unknown]

NARRATIVE: CASE EVENT DATE: 20210101
